FAERS Safety Report 15726799 (Version 2)
Quarter: 2024Q4

REPORT INFORMATION
  Report Type: Spontaneous
  Country: NL (occurrence: NL)
  Receive Date: 20181217
  Receipt Date: 20241218
  Transmission Date: 20250114
  Serious: Yes (Hospitalization, Other)
  Sender: ACCORD
  Company Number: None

PATIENT
  Age: 51 Year
  Sex: Male
  Weight: 86 kg

DRUGS (3)
  1. ALLOPURINOL [Suspect]
     Active Substance: ALLOPURINOL
     Indication: Colitis ulcerative
     Route: 065
  2. MESALAMINE [Suspect]
     Active Substance: MESALAMINE
     Indication: Colitis ulcerative
     Dosage: ALSO RECEIVED SAME DRUG THROUGH ORAL ROUTE OF ADMINISTRATION
     Route: 054
  3. MERCAPTOPURINE [Suspect]
     Active Substance: MERCAPTOPURINE
     Indication: Colitis ulcerative
     Dosage: DOSE REDUCED BY 25- 33 %, 150 MG (1.7 MG/KG) DAILY
     Route: 065

REACTIONS (6)
  - Pyrexia [Unknown]
  - Myelosuppression [Unknown]
  - Anaemia [Recovered/Resolved]
  - Condition aggravated [Unknown]
  - Leukopenia [Recovering/Resolving]
  - Off label use [Unknown]
